FAERS Safety Report 4633865-9 (Version None)
Quarter: 2005Q1

REPORT INFORMATION
  Report Type: 
  Country: None (occurrence: None)
  Receive Date: 20050325
  Receipt Date: 20041209
  Transmission Date: 20050727
  Serious: No
  Sender: FDA-Public Use
  Company Number: USA041285828

PATIENT
  Age: 80 Year
  Sex: Female
  Weight: 74 kg

DRUGS (1)
  1. FORTEO [Suspect]
     Indication: OSTEOPOROSIS
     Dosage: 20 UG/1 DAY
     Dates: start: 20030501

REACTIONS (6)
  - ARTHRALGIA [None]
  - BODY HEIGHT DECREASED [None]
  - BONE PAIN [None]
  - MUSCLE SPASMS [None]
  - MYALGIA [None]
  - PAIN [None]
